FAERS Safety Report 9043982 (Version 1)
Quarter: 2013Q1

REPORT INFORMATION
  Report Type: Report from Study
  Country: US (occurrence: US)
  Receive Date: 20130130
  Receipt Date: 20130130
  Transmission Date: 20140127
  Serious: No
  Sender: FDA-Public Use
  Company Number: US-ABBOTT-12P-163-0944521-00

PATIENT
  Sex: Female
  Weight: 74 kg

DRUGS (5)
  1. HUMIRA 40 MG/0.8 ML PEN [Suspect]
     Indication: CROHN^S DISEASE
     Route: 058
     Dates: start: 201204
  2. HUMIRA 40 MG/0.8 ML PEN [Suspect]
     Dosage: 160 MG LOADING DOSE
     Dates: start: 20120418, end: 20120418
  3. HUMIRA 40 MG/0.8 ML PEN [Suspect]
     Dates: start: 20120502
  4. OMEPRAZOLE [Concomitant]
     Indication: PRODUCT USED FOR UNKNOWN INDICATION
  5. DIPHENOXYLATE [Concomitant]
     Indication: PRODUCT USED FOR UNKNOWN INDICATION

REACTIONS (2)
  - Incorrect dose administered [Unknown]
  - Medication error [Unknown]
